FAERS Safety Report 8554502-7 (Version None)
Quarter: 2012Q3

REPORT INFORMATION
  Report Type: 
  Country: None (occurrence: None)
  Receive Date: 20120731
  Receipt Date: 20120720
  Transmission Date: 20120928
  Serious: Yes (Hospitalization)
  Sender: FDA-Public Use
  Company Number: SE-FRI-1000037480

PATIENT
  Age: 51 Year
  Sex: Male

DRUGS (4)
  1. ESCITALOPRAM [Suspect]
     Indication: ANXIETY
  2. OXAZEPAM [Concomitant]
     Dosage: 10-30 MG PER DAY
  3. METOPROLOL TARTRATE [Concomitant]
     Indication: ARRHYTHMIA
     Dosage: 50 MG
  4. ESCITALOPRAM [Suspect]
     Indication: PANIC DISORDER
     Dosage: 20 MG
     Route: 048
     Dates: start: 19990101

REACTIONS (2)
  - ARRHYTHMIA [None]
  - ATRIAL FIBRILLATION [None]
